FAERS Safety Report 19612046 (Version 1)
Quarter: 2021Q3

REPORT INFORMATION
  Report Type: Spontaneous
  Country: US (occurrence: US)
  Receive Date: 20210727
  Receipt Date: 20210727
  Transmission Date: 20211014
  Serious: Yes (Other)
  Sender: FDA-Public Use
  Company Number: US-SA-2021SA246030

PATIENT
  Age: 50 Year
  Sex: Female

DRUGS (2)
  1. ZANTAC 150 (RANITIDINE HYDROCHLORIDE) [Suspect]
     Active Substance: RANITIDINE HYDROCHLORIDE
     Indication: GASTROOESOPHAGEAL REFLUX DISEASE
  2. ZANTAC 150 (RANITIDINE HYDROCHLORIDE) [Suspect]
     Active Substance: RANITIDINE HYDROCHLORIDE
     Indication: ABDOMINAL DISCOMFORT
     Dosage: 150 MG
     Dates: start: 198501, end: 201906

REACTIONS (9)
  - Breast cancer [Unknown]
  - Colorectal cancer [Unknown]
  - Small intestine carcinoma [Unknown]
  - Cancer in remission [Unknown]
  - Carcinoid tumour [Unknown]
  - Breast disorder [Unknown]
  - Gastrointestinal carcinoma [Unknown]
  - Neoplasm malignant [Unknown]
  - Carcinoid tumour of the gastrointestinal tract [Unknown]

NARRATIVE: CASE EVENT DATE: 20000101
